FAERS Safety Report 7736644-9 (Version None)
Quarter: 2011Q3

REPORT INFORMATION
  Report Type: 
  Country: None (occurrence: None)
  Receive Date: 20110902
  Receipt Date: 20110822
  Transmission Date: 20111222
  Serious: Yes (Life-Threatening, Hospitalization)
  Sender: FDA-Public Use
  Company Number: 2011MA012353

PATIENT
  Age: 8 Year
  Sex: Male

DRUGS (2)
  1. ACYCLOVIR [Suspect]
     Indication: VARICELLA
     Dosage: 30 MG/KG;QD;IV
     Route: 042
  2. CIDOFOVIR [Suspect]
     Indication: VARICELLA
     Dosage: 5 MG/KG;

REACTIONS (9)
  - HERPES ZOSTER [None]
  - BLOOD LACTATE DEHYDROGENASE INCREASED [None]
  - FIBRIN D DIMER INCREASED [None]
  - ASPARTATE AMINOTRANSFERASE INCREASED [None]
  - GAMMA-GLUTAMYLTRANSFERASE INCREASED [None]
  - BLOOD ALBUMIN DECREASED [None]
  - PAIN IN EXTREMITY [None]
  - ALANINE AMINOTRANSFERASE INCREASED [None]
  - BLOOD CHOLINESTERASE DECREASED [None]
